FAERS Safety Report 15796279 (Version 2)
Quarter: 2019Q1

REPORT INFORMATION
  Report Type: Spontaneous
  Country: CN (occurrence: CN)
  Receive Date: 20190108
  Receipt Date: 20190305
  Transmission Date: 20190417
  Serious: Yes (Death)
  Sender: FDA-Public Use
  Company Number: CN-ROCHE-2239401

PATIENT
  Age: 53 Year
  Sex: Male

DRUGS (10)
  1. CYCLOPHOSPHAMIDE. [Suspect]
     Active Substance: CYCLOPHOSPHAMIDE
     Indication: DIFFUSE LARGE B-CELL LYMPHOMA
     Dosage: DAY 1
     Route: 065
     Dates: start: 20170707, end: 20170712
  2. RITUXIMAB. [Suspect]
     Active Substance: RITUXIMAB
     Indication: DIFFUSE LARGE B-CELL LYMPHOMA
     Dosage: DAY 0
     Route: 042
     Dates: start: 20170707, end: 20170712
  3. RITUXIMAB. [Suspect]
     Active Substance: RITUXIMAB
     Dosage: DAY 0
     Route: 042
     Dates: start: 20170905, end: 20170910
  4. CYCLOPHOSPHAMIDE. [Suspect]
     Active Substance: CYCLOPHOSPHAMIDE
     Route: 065
     Dates: start: 20170905, end: 20170910
  5. VINDESINE [Suspect]
     Active Substance: VINDESINE
     Route: 065
     Dates: start: 20170905, end: 20170910
  6. DOXORUBICIN [Suspect]
     Active Substance: DOXORUBICIN
     Indication: DIFFUSE LARGE B-CELL LYMPHOMA
     Dosage: DAY 1
     Route: 065
     Dates: start: 20170707, end: 20170712
  7. PREDNISONE. [Suspect]
     Active Substance: PREDNISONE
     Indication: DIFFUSE LARGE B-CELL LYMPHOMA
     Dosage: DAY 1
     Route: 065
     Dates: start: 20170707, end: 20170712
  8. DOXORUBICIN [Suspect]
     Active Substance: DOXORUBICIN
     Route: 065
     Dates: start: 20170905, end: 20170910
  9. PREDNISONE. [Suspect]
     Active Substance: PREDNISONE
     Route: 065
     Dates: start: 20170905, end: 20170910
  10. VINDESINE [Suspect]
     Active Substance: VINDESINE
     Indication: DIFFUSE LARGE B-CELL LYMPHOMA
     Dosage: DAY 1
     Route: 065
     Dates: start: 20170707, end: 20170712

REACTIONS (2)
  - Haemoptysis [Fatal]
  - Lung infection [Fatal]
